FAERS Safety Report 14689236 (Version 1)
Quarter: 2018Q1

REPORT INFORMATION
  Report Type: Spontaneous
  Country: US (occurrence: US)
  Receive Date: 20180327
  Receipt Date: 20180327
  Transmission Date: 20180509
  Serious: Yes (Disabling, Other)
  Sender: FDA-Public Use
  Company Number: None

PATIENT
  Age: 58 Year
  Sex: Female
  Weight: 67.5 kg

DRUGS (16)
  1. TOPARIMATE [Concomitant]
     Active Substance: TOPIRAMATE
  2. MELOXICAM. [Concomitant]
     Active Substance: MELOXICAM
  3. NORTRIPTYLINE [Concomitant]
     Active Substance: NORTRIPTYLINE
  4. CALCIUM [Concomitant]
     Active Substance: CALCIUM
  5. ENROA INHALER [Concomitant]
  6. VITAMIN D [Concomitant]
     Active Substance: CHOLECALCIFEROL
  7. MVI [Concomitant]
     Active Substance: VITAMINS
  8. PLAVIX [Concomitant]
     Active Substance: CLOPIDOGREL BISULFATE
  9. METOPROLOL. [Concomitant]
     Active Substance: METOPROLOL
  10. ASPIRIN. [Concomitant]
     Active Substance: ASPIRIN
  11. ACIPHEX [Concomitant]
     Active Substance: RABEPRAZOLE SODIUM
  12. POTASSIUM [Concomitant]
     Active Substance: POTASSIUM
  13. ATORVASTATIN [Concomitant]
     Active Substance: ATORVASTATIN
  14. PRIMPEXOLE [Concomitant]
  15. LASIX [Concomitant]
     Active Substance: FUROSEMIDE
  16. BENLYSTA [Suspect]
     Active Substance: BELIMUMAB
     Indication: SYSTEMIC LUPUS ERYTHEMATOSUS
     Dosage: ?          QUANTITY:100 INJECTION(S);OTHER FREQUENCY:ONCE/WEEK;OTHER ROUTE:SUBQ?
     Route: 058

REACTIONS (4)
  - Diplopia [None]
  - Dizziness [None]
  - Diarrhoea [None]
  - Nausea [None]

NARRATIVE: CASE EVENT DATE: 20180327
